FAERS Safety Report 12114943 (Version 1)
Quarter: 2016Q1

REPORT INFORMATION
  Report Type: Other
  Country: GB (occurrence: GB)
  Receive Date: 20160225
  Receipt Date: 20160225
  Transmission Date: 20160526
  Serious: Yes (Other)
  Sender: FDA-Public Use
  Company Number: GB-MYLANLABS-2016M1007127

PATIENT

DRUGS (1)
  1. RISPERIDONE. [Suspect]
     Active Substance: RISPERIDONE
     Indication: RESTLESS LEGS SYNDROME
     Dosage: UNK
     Route: 065
     Dates: start: 201509, end: 201510

REACTIONS (13)
  - Hypersomnia [Unknown]
  - Balance disorder [Unknown]
  - Tremor [Unknown]
  - Pain [Unknown]
  - Feeling abnormal [Unknown]
  - Drug dispensing error [Unknown]
  - Myalgia [Unknown]
  - Visual acuity reduced [Unknown]
  - Malaise [Unknown]
  - Fatigue [Unknown]
  - Poor quality sleep [Unknown]
  - Frustration tolerance decreased [Unknown]
  - Anxiety [Unknown]

NARRATIVE: CASE EVENT DATE: 20150915
